FAERS Safety Report 11346917 (Version 1)
Quarter: 2015Q3

REPORT INFORMATION
  Report Type: Spontaneous
  Country: US (occurrence: US)
  Receive Date: 20150803
  Receipt Date: 20150803
  Transmission Date: 20151125
  Serious: Yes (Hospitalization, Other)
  Sender: FDA-Public Use
  Company Number: US-ELI_LILLY_AND_COMPANY-US201101007635

PATIENT
  Sex: Male
  Weight: 58.96 kg

DRUGS (2)
  1. ZYPREXA [Suspect]
     Active Substance: OLANZAPINE
     Indication: ANXIETY DISORDER
     Dates: start: 200305, end: 2007
  2. SEROQUEL [Concomitant]
     Active Substance: QUETIAPINE FUMARATE

REACTIONS (9)
  - Insulin resistance [Unknown]
  - Vision blurred [Unknown]
  - Weight decreased [Unknown]
  - Type 1 diabetes mellitus [Not Recovered/Not Resolved]
  - Diabetic ketoacidosis [Unknown]
  - Priapism [Recovered/Resolved]
  - Blood alkaline phosphatase increased [Unknown]
  - Off label use [Recovered/Resolved]
  - Blood triglycerides increased [Unknown]
